FAERS Safety Report 5094081-2 (Version None)
Quarter: 2006Q3

REPORT INFORMATION
  Report Type: 
  Country: None (occurrence: None)
  Receive Date: 20060831
  Receipt Date: 20060824
  Transmission Date: 20061208
  Serious: Yes (Other)
  Sender: FDA-Public Use
  Company Number: US-SANOFI-SYNTHELABO-A03200605345

PATIENT
  Sex: Female

DRUGS (1)
  1. PLAVIX [Suspect]
     Indication: THROMBOSIS
     Route: 048
     Dates: start: 20050601, end: 20060201

REACTIONS (2)
  - HAEMOPTYSIS [None]
  - RESPIRATORY TRACT INFECTION FUNGAL [None]
